FAERS Safety Report 14324467 (Version 1)
Quarter: 2017Q4

REPORT INFORMATION
  Report Type: Spontaneous
  Country: US (occurrence: US)
  Receive Date: 20171222
  Receipt Date: 20171222
  Transmission Date: 20180321
  Serious: Yes (Hospitalization)
  Sender: FDA-Public Use
  Company Number: None

PATIENT
  Age: 64 Year
  Sex: Female

DRUGS (13)
  1. STELARA [Suspect]
     Active Substance: USTEKINUMAB
     Indication: ARTHRITIS
     Dosage: 45 MG ONCE EVERY 3 MONTHS SUBCUTANEOUSLY
     Route: 058
     Dates: start: 20170627
  2. VITAMIN C [Concomitant]
     Active Substance: ASCORBIC ACID
  3. METHOTREXATE. [Concomitant]
     Active Substance: METHOTREXATE
  4. DULOXETINE. [Concomitant]
     Active Substance: DULOXETINE
  5. CALCIUM [Concomitant]
     Active Substance: CALCIUM
  6. STELARA [Suspect]
     Active Substance: USTEKINUMAB
     Indication: PSORIASIS
     Dosage: 45 MG ONCE EVERY 3 MONTHS SUBCUTANEOUSLY
     Route: 058
     Dates: start: 20170627
  7. VITAMIN D [Concomitant]
     Active Substance: CHOLECALCIFEROL
  8. MULTIVITAMIN [Concomitant]
     Active Substance: VITAMINS
  9. IRON TAB [Concomitant]
  10. FOLIC ACID. [Concomitant]
     Active Substance: FOLIC ACID
  11. TRAMADOL. [Concomitant]
     Active Substance: TRAMADOL
  12. PREDNISONE. [Concomitant]
     Active Substance: PREDNISONE
  13. CLONZEPAM [Concomitant]
     Active Substance: CLONAZEPAM

REACTIONS (1)
  - Surgery [None]

NARRATIVE: CASE EVENT DATE: 20171021
